FAERS Safety Report 16222324 (Version 1)
Quarter: 2019Q2

REPORT INFORMATION
  Report Type: Spontaneous
  Country: JP (occurrence: JP)
  Receive Date: 20190422
  Receipt Date: 20190422
  Transmission Date: 20190711
  Serious: Yes (Death)
  Sender: FDA-Public Use
  Company Number: JP-ELI_LILLY_AND_COMPANY-JP201904010688

PATIENT
  Age: 76 Year
  Sex: Male

DRUGS (9)
  1. FORTEO [Suspect]
     Active Substance: TERIPARATIDE
     Indication: OSTEOPOROSIS
     Dosage: 20 UG
     Route: 058
  2. REBAMIPIDE [Concomitant]
     Active Substance: REBAMIPIDE
  3. PROPETO [Concomitant]
  4. BETANIS [Concomitant]
     Active Substance: MIRABEGRON
  5. BONALFA [Concomitant]
     Active Substance: TACALCITOL
  6. LOXOPROFEN SODIUM HYDRATE [Concomitant]
     Active Substance: LOXOPROFEN SODIUM DIHYDRATE
  7. TIGASONE [Concomitant]
     Active Substance: ACITRETIN
  8. XYZAL [Concomitant]
     Active Substance: LEVOCETIRIZINE DIHYDROCHLORIDE
  9. ECLAR [Concomitant]
     Active Substance: DEPRODONE PROPIONATE

REACTIONS (2)
  - Death [Fatal]
  - Decreased appetite [Unknown]
